FAERS Safety Report 7271813-6 (Version None)
Quarter: 2011Q1

REPORT INFORMATION
  Report Type: 
  Country: None (occurrence: None)
  Receive Date: 20110203
  Receipt Date: 20110124
  Transmission Date: 20110831
  Serious: Yes (Other)
  Sender: FDA-Public Use
  Company Number: US-AMGEN-USASP2011004282

PATIENT
  Age: 58 Year
  Sex: Female

DRUGS (11)
  1. MAGNESIUM [Concomitant]
     Dosage: UNK
  2. VITAMIN B6 [Concomitant]
     Dosage: UNK
  3. FERROUS SULFATE TAB [Concomitant]
     Dosage: UNK
  4. ZOFRAN [Concomitant]
     Dosage: UNK
  5. POTASSIUM CHLORIDE [Concomitant]
  6. MULTIVITAMIN                       /00097801/ [Concomitant]
  7. CALCIUM CITRATE W/VITAMIN D NOS [Concomitant]
  8. AMBIEN [Concomitant]
     Dosage: UNK
  9. PROTONIX [Concomitant]
     Dosage: UNK
  10. PROLIA [Suspect]
     Indication: OSTEOPOROSIS POSTMENOPAUSAL
     Dates: start: 20101228
  11. ARIMIDEX [Concomitant]
     Dosage: UNK

REACTIONS (4)
  - PARAESTHESIA ORAL [None]
  - LIP SWELLING [None]
  - DIZZINESS [None]
  - ASTHENIA [None]
